FAERS Safety Report 12312311 (Version 1)
Quarter: 2016Q2

REPORT INFORMATION
  Report Type: Spontaneous
  Country: CA (occurrence: CA)
  Receive Date: 20160428
  Receipt Date: 20160428
  Transmission Date: 20160815
  Serious: Yes (Other)
  Sender: FDA-Public Use
  Company Number: CA-ROCHE-1748065

PATIENT
  Age: 52 Year
  Sex: Male

DRUGS (4)
  1. RIBAVIRIN. [Suspect]
     Active Substance: RIBAVIRIN
     Indication: CHRONIC HEPATITIS C
     Route: 048
  2. METHADONE [Concomitant]
     Active Substance: METHADONE HYDROCHLORIDE
     Route: 065
  3. SOFOSBUVIR [Suspect]
     Active Substance: SOFOSBUVIR
     Indication: CHRONIC HEPATITIS C
     Route: 048
  4. PEGASYS [Suspect]
     Active Substance: PEGINTERFERON ALFA-2A
     Indication: CHRONIC HEPATITIS C
     Route: 058

REACTIONS (22)
  - Memory impairment [Unknown]
  - Suicidal ideation [Unknown]
  - Agitation [Unknown]
  - Hepatic pain [Unknown]
  - Depression [Unknown]
  - Haemoglobin decreased [Unknown]
  - Homicidal ideation [Unknown]
  - Abnormal dreams [Unknown]
  - Dizziness [Unknown]
  - Activities of daily living impaired [Unknown]
  - Drug intolerance [Unknown]
  - Dyspnoea [Unknown]
  - Chest discomfort [Unknown]
  - Mood altered [Unknown]
  - Dysgeusia [Unknown]
  - Feeling abnormal [Unknown]
  - Feeling hot [Unknown]
  - Hunger [Unknown]
  - Mood swings [Unknown]
  - Toothache [Unknown]
  - Aggression [Unknown]
  - Insomnia [Unknown]
